FAERS Safety Report 16237562 (Version 1)
Quarter: 2019Q2

REPORT INFORMATION
  Report Type: Spontaneous
  Country: US (occurrence: US)
  Receive Date: 20190425
  Receipt Date: 20190425
  Transmission Date: 20190711
  Serious: Yes (Other)
  Sender: FDA-Public Use
  Company Number: US-PURDUE-USA-2019-0146936

PATIENT
  Sex: Female

DRUGS (2)
  1. OXYCONTIN [Suspect]
     Active Substance: OXYCODONE HYDROCHLORIDE
     Dosage: 40 MG, TID
     Route: 048
  2. OXYCONTIN [Suspect]
     Active Substance: OXYCODONE HYDROCHLORIDE
     Indication: PAIN
     Dosage: 80 MG, TID
     Route: 048

REACTIONS (11)
  - Weight decreased [Unknown]
  - Colostomy [Unknown]
  - Abdominal abscess [Unknown]
  - Pain [Unknown]
  - Unevaluable event [Unknown]
  - Vomiting [Unknown]
  - Intestinal resection [Unknown]
  - Ileostomy [Unknown]
  - Stoma creation [Unknown]
  - Off label use [Unknown]
  - General physical health deterioration [Unknown]
